FAERS Safety Report 9355252 (Version 1)
Quarter: 2013Q2

REPORT INFORMATION
  Report Type: Report from Study
  Country: BR (occurrence: BR)
  Receive Date: 20130619
  Receipt Date: 20130619
  Transmission Date: 20140414
  Serious: Yes (Death)
  Sender: FDA-Public Use
  Company Number: PHHY2013BR061833

PATIENT
  Sex: Male

DRUGS (4)
  1. EXELON PATCH [Suspect]
     Indication: DEMENTIA ALZHEIMER^S TYPE
     Dosage: 4.6 MG, DAILY
     Route: 062
  2. EXELON PATCH [Suspect]
     Indication: NERVOUS SYSTEM DISORDER
  3. EXELON PATCH [Suspect]
     Indication: OFF LABEL USE
  4. TEGRETOL [Suspect]

REACTIONS (3)
  - Neurodegenerative disorder [Fatal]
  - Lung disorder [Fatal]
  - Cardio-respiratory arrest [Fatal]
